FAERS Safety Report 25994635 (Version 1)
Quarter: 2025Q4

REPORT INFORMATION
  Report Type: Spontaneous
  Country: CN (occurrence: CN)
  Receive Date: 20251104
  Receipt Date: 20251104
  Transmission Date: 20260118
  Serious: Yes (Hospitalization)
  Sender: SANOFI AVENTIS
  Company Number: CN-SA-2025SA324128

PATIENT
  Age: 63 Year
  Sex: Male
  Weight: 68 kg

DRUGS (2)
  1. OXALIPLATIN [Suspect]
     Active Substance: OXALIPLATIN
     Indication: Hepatobiliary neoplasm
     Dosage: 150.000MG 1X ST
     Route: 041
     Dates: start: 20251022, end: 20251022
  2. DEXTROSE [Concomitant]
     Active Substance: DEXTROSE MONOHYDRATE
     Indication: Hepatobiliary neoplasm
     Dosage: 250 ML, QD
     Route: 041
     Dates: start: 20251022, end: 20251023

REACTIONS (4)
  - Face oedema [Recovering/Resolving]
  - Chest discomfort [Recovering/Resolving]
  - Dyspnoea [Recovering/Resolving]
  - Asthenia [Recovering/Resolving]

NARRATIVE: CASE EVENT DATE: 20251022
